FAERS Safety Report 4645846-X (Version None)
Quarter: 2005Q2

REPORT INFORMATION
  Report Type: 
  Country: None (occurrence: None)
  Receive Date: 20050422
  Receipt Date: 20050422
  Transmission Date: 20051028
  Serious: No
  Sender: FDA-Public Use
  Company Number: None

PATIENT
  Age: 74 Year
  Sex: Female

DRUGS (3)
  1. DILAUDID [Suspect]
     Indication: THERAPEUTIC PROCEDURE
     Dosage: 2MG  IV  1X
     Route: 042
  2. DILAUDID [Suspect]
     Indication: VASCULAR PSEUDOANEURYSM
     Dosage: 2MG  IV  1X
     Route: 042
  3. ATIVAN [Suspect]
     Dosage: 2MG IV  1X
     Route: 042

REACTIONS (4)
  - PROCEDURAL COMPLICATION [None]
  - RESPIRATORY ARREST [None]
  - RESPIRATORY RATE DECREASED [None]
  - SEDATION [None]
